FAERS Safety Report 14527332 (Version 2)
Quarter: 2018Q1

REPORT INFORMATION
  Report Type: Report from Study
  Country: MX (occurrence: MX)
  Receive Date: 20180213
  Receipt Date: 20180228
  Transmission Date: 20180509
  Serious: Yes (Other)
  Sender: FDA-Public Use
  Company Number: PHHY2018MX023590

PATIENT
  Age: 72 Year
  Sex: Female

DRUGS (8)
  1. TAFIL [Concomitant]
     Active Substance: ALPRAZOLAM
     Indication: DEPRESSION
     Dosage: 0.5 DF, BID (1/4 MORNING AND 1/4 IN THE NIGHT) (8 YEARS)
     Route: 048
  2. TAFITRAM [Concomitant]
     Indication: DEPRESSION
     Dosage: 0.25 DF, WHEN GOING TO BED
     Route: 065
     Dates: start: 20180202
  3. TAFIL [Concomitant]
     Active Substance: ALPRAZOLAM
     Indication: FATIGUE
     Dosage: 0.25 DF, BID (1/2 MORNING AND 1/4 IN THE NIGHT) (8 YEARS AGO, APPROXIMATELY) ONE WEEK AGO STOPPED
     Route: 065
  4. STALEVO [Suspect]
     Active Substance: CARBIDOPA\ENTACAPONE\LEVODOPA
     Indication: PARKINSON^S DISEASE
     Dosage: 2 DF (25 MG CARBIDOPA, 200 MG ENTACAPONE, 100 MG LEVODOPA), QD
     Route: 048
     Dates: start: 201801
  5. NEUROBION [Concomitant]
     Active Substance: CYANOCOBALAMIN\PYRIDOXINE\THIAMINE
     Indication: MYALGIA
     Route: 065
  6. EUTIROX [Concomitant]
     Active Substance: LEVOTHYROXINE SODIUM
     Indication: THYROID DISORDER
     Dosage: 100 MLC, QD (20 YEARS AGO, APPROXIMATELY)
     Route: 065
  7. STALEVO [Suspect]
     Active Substance: CARBIDOPA\ENTACAPONE\LEVODOPA
     Dosage: 2 DF (31.25 MG CARBIDOPA, 200 MG ENTACAPONE, 125 MG LEVODOPA), QD (HAD NOT TAKEN YET)
     Route: 048
  8. TAFIL [Concomitant]
     Active Substance: ALPRAZOLAM
     Indication: SLEEP DISORDER

REACTIONS (9)
  - Cerebrovascular accident [Unknown]
  - Depression [Not Recovered/Not Resolved]
  - Vision blurred [Unknown]
  - Ocular hyperaemia [Unknown]
  - Fall [Not Recovered/Not Resolved]
  - Haematoma [Unknown]
  - Muscle rigidity [Unknown]
  - Rib fracture [Unknown]
  - Injury [Recovering/Resolving]

NARRATIVE: CASE EVENT DATE: 20180204
